FAERS Safety Report 24000485 (Version 1)
Quarter: 2024Q2

REPORT INFORMATION
  Report Type: Spontaneous
  Country: US (occurrence: None)
  Receive Date: 20240621
  Receipt Date: 20240621
  Transmission Date: 20240715
  Serious: Yes (Death, Hospitalization)
  Sender: FDA-Public Use
  Company Number: None

PATIENT
  Age: 77 Year
  Sex: Male

DRUGS (1)
  1. MESALAMINE [Suspect]
     Active Substance: MESALAMINE
     Indication: Colitis
     Dosage: 500 MG QID PO?
     Route: 048
     Dates: start: 20231221, end: 20240113

REACTIONS (9)
  - Acute kidney injury [None]
  - Urinary tract infection [None]
  - Hypervolaemia [None]
  - Pleural effusion [None]
  - Atrial fibrillation [None]
  - Tubulointerstitial nephritis [None]
  - Renal ischaemia [None]
  - Hypovolaemia [None]
  - Hypotension [None]

NARRATIVE: CASE EVENT DATE: 20231230
